FAERS Safety Report 10220477 (Version 2)
Quarter: 2014Q2

REPORT INFORMATION
  Report Type: Spontaneous
  Country: FR (occurrence: FR)
  Receive Date: 20140606
  Receipt Date: 20140617
  Transmission Date: 20141212
  Serious: Yes (Hospitalization, Other)
  Sender: FDA-Public Use
  Company Number: FR-PFIZER INC-2014153609

PATIENT
  Age: 69 Year
  Sex: Male

DRUGS (10)
  1. ORELOX [Suspect]
     Dosage: 1 DF, 3X/DAY
     Route: 048
     Dates: start: 20130912, end: 20130919
  2. ALTEIS [Suspect]
     Dosage: UNK
     Dates: start: 2013, end: 2013
  3. NEXIUM [Suspect]
     Dosage: 1 DF, DAILY
     Route: 048
     Dates: start: 20130912, end: 20130919
  4. SPIFEN [Suspect]
     Dosage: 1 DF, 3X/DAY
     Route: 048
     Dates: start: 20130912, end: 20130919
  5. DIMETANE [Suspect]
     Dosage: UNK
     Route: 048
     Dates: start: 20130912, end: 20130919
  6. RHINOTROPHYL [Suspect]
     Dosage: UNK
     Route: 045
     Dates: start: 20130912, end: 20130919
  7. KARDEGIC [Concomitant]
     Dosage: UNK
  8. TAHOR [Concomitant]
     Dosage: UNK
  9. AERIUS [Concomitant]
     Dosage: UNK
  10. FELODIPINE [Concomitant]
     Dosage: UNK

REACTIONS (5)
  - Eyelid oedema [Recovered/Resolved]
  - Urticaria [Recovered/Resolved]
  - Face oedema [Recovered/Resolved]
  - Angioedema [Recovered/Resolved]
  - Urticaria [Recovered/Resolved]
